FAERS Safety Report 7750531-1 (Version None)
Quarter: 2011Q3

REPORT INFORMATION
  Report Type: 
  Country: None (occurrence: None)
  Receive Date: 20110914
  Receipt Date: 20110831
  Transmission Date: 20111222
  Serious: Yes (Other)
  Sender: FDA-Public Use
  Company Number: US-JNJFOC-20110901544

PATIENT
  Age: 32 Year
  Sex: Male
  Weight: 65.77 kg

DRUGS (5)
  1. EPIPEN [Concomitant]
     Indication: HYPERSENSITIVITY
     Route: 065
  2. BENADRYL [Suspect]
     Indication: PROPHYLAXIS
     Dosage: ONE STRIP ONCE
     Route: 048
     Dates: start: 20110101, end: 20110101
  3. OMEPRAZOLE [Concomitant]
     Indication: GASTROOESOPHAGEAL REFLUX DISEASE
     Route: 065
  4. BENADRYL [Suspect]
     Route: 048
  5. SINGULAIR [Concomitant]
     Indication: ASTHMA
     Route: 065

REACTIONS (4)
  - PHARYNGEAL OEDEMA [None]
  - THROAT TIGHTNESS [None]
  - DYSPNOEA [None]
  - OEDEMA MOUTH [None]
